FAERS Safety Report 4713730-9 (Version None)
Quarter: 2005Q3

REPORT INFORMATION
  Report Type: 
  Country: None (occurrence: None)
  Receive Date: 20050712
  Receipt Date: 20050629
  Transmission Date: 20060218
  Serious: Yes (Death)
  Sender: FDA-Public Use
  Company Number: USA-2005-0020653

PATIENT
  Sex: Male

DRUGS (1)
  1. OXYCONTIN [Suspect]
     Indication: PAIN
     Dosage: 30 MG, Q12H
     Dates: start: 20020402

REACTIONS (3)
  - CHEST PAIN [None]
  - HERNIA REPAIR [None]
  - SOMNOLENCE [None]
